FAERS Safety Report 10637171 (Version 4)
Quarter: 2015Q1

REPORT INFORMATION
  Report Type: Spontaneous
  Country: US (occurrence: US)
  Receive Date: 20141208
  Receipt Date: 20150213
  Transmission Date: 20150720
  Serious: No
  Sender: FDA-Public Use
  Company Number: US-PFIZER INC-2014334548

PATIENT
  Age: 49 Year
  Sex: Male

DRUGS (4)
  1. CODEINE [Concomitant]
     Active Substance: CODEINE
     Dosage: UNK
  2. ELAVIL [Concomitant]
     Active Substance: AMITRIPTYLINE HYDROCHLORIDE
     Dosage: UNK
     Dates: start: 20140922, end: 20141010
  3. LYRICA [Concomitant]
     Active Substance: PREGABALIN
     Dosage: UNK
     Dates: start: 20140925, end: 201410
  4. CELEBREX [Suspect]
     Active Substance: CELECOXIB
     Indication: ARTHRITIS
     Dosage: 200 MG, 1X/DAY
     Route: 048
     Dates: start: 20140925, end: 20141008

REACTIONS (2)
  - Drug hypersensitivity [Recovered/Resolved]
  - Rash [Recovered/Resolved]
